FAERS Safety Report 6589391-3 (Version None)
Quarter: 2010Q1

REPORT INFORMATION
  Report Type: 
  Country: None (occurrence: None)
  Receive Date: 20100212
  Receipt Date: 20100125
  Transmission Date: 20100710
  Serious: Yes (Life-Threatening, Other)
  Sender: FDA-Public Use
  Company Number: FR-2010-0153

PATIENT
  Age: 62 Year
  Sex: Female

DRUGS (12)
  1. NAVELBINE [Suspect]
     Indication: BRONCHIAL CARCINOMA
     Dates: start: 20090824, end: 20090826
  2. CISPLATIN [Concomitant]
  3. ERBITUX [Concomitant]
  4. EMEND [Concomitant]
  5. ZOPHREN [Concomitant]
  6. MOTILIUM [Concomitant]
  7. PRIMPERAN [Concomitant]
  8. SOLUPERAN [Concomitant]
  9. DOLIPRANE [Concomitant]
  10. LEVOTHYROX [Concomitant]
  11. TETRAZEPAM [Concomitant]
  12. TRAMADOL HCL [Concomitant]

REACTIONS (12)
  - ASTHENIA [None]
  - DECREASED APPETITE [None]
  - DYSPEPSIA [None]
  - GASTROOESOPHAGEAL REFLUX DISEASE [None]
  - GENERAL PHYSICAL HEALTH DETERIORATION [None]
  - INAPPROPRIATE ANTIDIURETIC HORMONE SECRETION [None]
  - MUCOSAL INFLAMMATION [None]
  - NAUSEA [None]
  - THERAPEUTIC AGENT TOXICITY [None]
  - TINNITUS [None]
  - VOMITING [None]
  - WEIGHT DECREASED [None]
